FAERS Safety Report 19903337 (Version 1)
Quarter: 2021Q4

REPORT INFORMATION
  Report Type: Spontaneous
  Country: JP (occurrence: JP)
  Receive Date: 20211001
  Receipt Date: 20211001
  Transmission Date: 20220303
  Serious: Yes (Other)
  Sender: FDA-Public Use
  Company Number: JP-SA-2021SA320503

PATIENT
  Sex: Female

DRUGS (2)
  1. KEVZARA [Suspect]
     Active Substance: SARILUMAB
     Indication: Product used for unknown indication
     Dosage: UNK
     Route: 058
  2. KEVZARA [Suspect]
     Active Substance: SARILUMAB
     Dosage: UNK
     Route: 058

REACTIONS (6)
  - Immobile [Unknown]
  - Fracture [Unknown]
  - Oropharyngeal pain [Unknown]
  - Constipation [Unknown]
  - Abdominal distension [Unknown]
  - Dyschezia [Unknown]
